FAERS Safety Report 26196981 (Version 1)
Quarter: 2025Q4

REPORT INFORMATION
  Report Type: Spontaneous
  Country: US (occurrence: US)
  Receive Date: 20251224
  Receipt Date: 20251224
  Transmission Date: 20260117
  Serious: Yes (Hospitalization, Other)
  Sender: ASCEND THERAPEUTICS US, LLC
  Company Number: US-Ascend Therapeutics US, LLC-2190561

PATIENT
  Age: 51 Year

DRUGS (4)
  1. ANDROGEL [Suspect]
     Active Substance: TESTOSTERONE
     Indication: Hypogonadism male
  2. TESTOSTERONE [Suspect]
     Active Substance: TESTOSTERONE
  3. PREGNENOLONE [Suspect]
     Active Substance: PREGNENOLONE
  4. PRASTERONE [Suspect]
     Active Substance: PRASTERONE

REACTIONS (1)
  - Aortic thrombosis [Unknown]
